FAERS Safety Report 24654383 (Version 1)
Quarter: 2024Q4

REPORT INFORMATION
  Report Type: Spontaneous
  Country: US (occurrence: None)
  Receive Date: 20241122
  Receipt Date: 20241122
  Transmission Date: 20250115
  Serious: Yes (Hospitalization)
  Sender: Public
  Company Number: None

PATIENT
  Sex: Female

DRUGS (3)
  1. MYCOPHENOLIC ACID [Suspect]
     Active Substance: MYCOPHENOLIC ACID
     Indication: Liver transplant
     Dosage: 180MG TWICE DAILY ORAL
     Route: 048
     Dates: start: 20240802
  2. MYCOPHENOLIC ACID [Concomitant]
     Active Substance: MYCOPHENOLIC ACID
  3. ENVARSUS XR [Concomitant]
     Active Substance: TACROLIMUS

REACTIONS (5)
  - Pyrexia [None]
  - Nausea [None]
  - Vomiting [None]
  - Liver disorder [None]
  - Gastroenteritis viral [None]
